FAERS Safety Report 9728902 (Version 2)
Quarter: 2014Q1

REPORT INFORMATION
  Report Type: Report from Study
  Country: GB (occurrence: GB)
  Receive Date: 20131204
  Receipt Date: 20140305
  Transmission Date: 20141002
  Serious: Yes (Hospitalization, Other)
  Sender: FDA-Public Use
  Company Number: GB-US-EMD SERONO, INC.-7253255

PATIENT
  Age: 63 Year
  Sex: Male

DRUGS (2)
  1. REBIF [Suspect]
     Indication: PRODUCT USED FOR UNKNOWN INDICATION
  2. CIALIS [Concomitant]
     Indication: ERECTILE DYSFUNCTION
     Route: 048

REACTIONS (2)
  - Meningitis bacterial [Recovered/Resolved]
  - Trigeminal neuralgia [Recovered/Resolved]
